FAERS Safety Report 7938892-1 (Version None)
Quarter: 2011Q4

REPORT INFORMATION
  Report Type: 
  Country: None (occurrence: None)
  Receive Date: 20111124
  Receipt Date: 20111116
  Transmission Date: 20120403
  Serious: Yes (Other)
  Sender: FDA-Public Use
  Company Number: US-JNJFOC-20111107392

PATIENT
  Sex: Male
  Weight: 65.32 kg

DRUGS (3)
  1. ZYTIGA [Suspect]
     Indication: PROSTATE CANCER
     Route: 048
     Dates: start: 20110901
  2. PRADAXA [Concomitant]
     Indication: DEEP VEIN THROMBOSIS
     Route: 048
  3. BETIMOL [Concomitant]
     Indication: EYE DISORDER
     Route: 031

REACTIONS (4)
  - BLOOD ALBUMIN DECREASED [None]
  - BLOOD CREATININE DECREASED [None]
  - HEPATIC STEATOSIS [None]
  - METASTASES TO BONE [None]
